FAERS Safety Report 24008563 (Version 2)
Quarter: 2024Q3

REPORT INFORMATION
  Report Type: Spontaneous
  Country: US (occurrence: US)
  Receive Date: 20240625
  Receipt Date: 20240727
  Transmission Date: 20241017
  Serious: No
  Sender: GLAXOSMITHKLINE
  Company Number: US-GSKCCFUS-Case-02035232_AE-112838

PATIENT
  Age: 59 Year
  Sex: Male
  Weight: 52.16 kg

DRUGS (1)
  1. VENTOLIN HFA [Suspect]
     Active Substance: ALBUTEROL SULFATE
     Indication: Dyspnoea
     Dosage: 200 MG; 10 TO 8 PUFFS 3XQD SOMETIMES 4X
     Route: 048
     Dates: start: 202405

REACTIONS (4)
  - Dyspnoea [Unknown]
  - Product dose omission issue [Recovered/Resolved]
  - Wrong technique in product usage process [Unknown]
  - Inappropriate schedule of product administration [Unknown]

NARRATIVE: CASE EVENT DATE: 20240614
